FAERS Safety Report 7411634-4 (Version None)
Quarter: 2011Q2

REPORT INFORMATION
  Report Type: 
  Country: None (occurrence: None)
  Receive Date: 20110413
  Receipt Date: 20110331
  Transmission Date: 20111010
  Serious: Yes (Other)
  Sender: FDA-Public Use
  Company Number: JP-JNJFOC-20090908247

PATIENT
  Sex: Female
  Weight: 59 kg

DRUGS (15)
  1. DOXORUBICIN HCL [Suspect]
     Dosage: CYCLE 2
     Route: 042
  2. DOXORUBICIN HCL [Suspect]
     Dosage: CYCLE 5
     Route: 042
  3. GEMCITABINE [Suspect]
     Indication: PRODUCT USED FOR UNKNOWN INDICATION
     Route: 041
  4. CLOPIDOGREL SULFATE [Concomitant]
     Indication: CEREBELLAR INFARCTION
     Route: 048
  5. DOXORUBICIN HCL [Suspect]
     Indication: OVARIAN CANCER RECURRENT
     Dosage: CYCLE 1
     Route: 042
  6. DOXORUBICIN HCL [Suspect]
     Dosage: CYCLE 3
     Route: 042
  7. CARBOPLATIN [Suspect]
     Indication: PRODUCT USED FOR UNKNOWN INDICATION
     Route: 041
  8. CELECOXIB [Concomitant]
     Indication: CANCER PAIN
     Route: 048
  9. PYRIDOXAL PHOSPHATE [Concomitant]
     Indication: PROPHYLAXIS
     Route: 048
  10. ATORVASTATIN CALCIUM [Concomitant]
     Indication: HYPERLIPIDAEMIA
     Route: 048
  11. LANSOPRAZOLE [Concomitant]
     Indication: REFLUX OESOPHAGITIS
     Route: 048
  12. ETIZOLAM [Concomitant]
     Indication: INSOMNIA
     Route: 048
  13. DEXAMETHASONE [Concomitant]
     Indication: PROPHYLAXIS
     Route: 048
  14. DOXORUBICIN HCL [Suspect]
     Dosage: CYCLE 6
     Route: 042
  15. DOXORUBICIN HCL [Suspect]
     Dosage: CYCLE 4
     Route: 042

REACTIONS (4)
  - NEUTROPENIA [None]
  - WHITE BLOOD CELL COUNT DECREASED [None]
  - ANAEMIA [None]
  - RED BLOOD CELL COUNT DECREASED [None]
